FAERS Safety Report 5159938-2 (Version None)
Quarter: 2006Q4

REPORT INFORMATION
  Report Type: 
  Country: None (occurrence: None)
  Receive Date: 20061129
  Receipt Date: 20061120
  Transmission Date: 20070319
  Serious: Yes (Hospitalization)
  Sender: FDA-Public Use
  Company Number: FR-AVENTIS-200614109FR

PATIENT
  Age: 81 Year
  Sex: Male

DRUGS (7)
  1. LASILIX                            /00032601/ [Suspect]
     Indication: DRUG USE FOR UNKNOWN INDICATION
     Route: 048
  2. CORDARONE [Suspect]
     Route: 048
  3. ATHYMIL [Suspect]
     Route: 048
     Dates: end: 20060925
  4. INSULATARD NPH HUMAN [Suspect]
     Route: 058
  5. NEXIUM [Suspect]
     Route: 048
  6. NITRODERM [Suspect]
     Route: 023
  7. DIFFU K [Concomitant]
     Route: 048

REACTIONS (6)
  - ALANINE AMINOTRANSFERASE INCREASED [None]
  - ANOREXIA [None]
  - ASPARTATE AMINOTRANSFERASE INCREASED [None]
  - BLOOD ALKALINE PHOSPHATASE INCREASED [None]
  - GAMMA-GLUTAMYLTRANSFERASE INCREASED [None]
  - MIXED HEPATOCELLULAR-CHOLESTATIC INJURY [None]
